FAERS Safety Report 7421465-7 (Version None)
Quarter: 2011Q2

REPORT INFORMATION
  Report Type: 
  Country: None (occurrence: None)
  Receive Date: 20110418
  Receipt Date: 20110411
  Transmission Date: 20111010
  Serious: Yes (Death, Other)
  Sender: FDA-Public Use
  Company Number: US-BAXTER-2011BH008357

PATIENT
  Age: 74 Year
  Sex: Male

DRUGS (1)
  1. DIANEAL [Suspect]
     Indication: PERITONEAL DIALYSIS
     Route: 033
     Dates: end: 20110330

REACTIONS (4)
  - MYOCARDIAL INFARCTION [None]
  - AORTIC CALCIFICATION [None]
  - BLOOD PRESSURE DECREASED [None]
  - MYOCARDIAL CALCIFICATION [None]
